FAERS Safety Report 24000848 (Version 1)
Quarter: 2024Q2

REPORT INFORMATION
  Report Type: Spontaneous
  Country: US (occurrence: US)
  Receive Date: 20240621
  Receipt Date: 20240621
  Transmission Date: 20240716
  Serious: No
  Sender: FDA-Public Use
  Company Number: US-PERRIGO-24US002939

PATIENT
  Age: 61 Year
  Sex: Male
  Weight: 86.168 kg

DRUGS (2)
  1. NASONEX [Suspect]
     Active Substance: MOMETASONE FUROATE
     Indication: Sneezing
     Dosage: 50 MCG IN EACH NOSTRIL, QD
     Route: 045
     Dates: start: 20240309, end: 20240320
  2. NASONEX [Suspect]
     Active Substance: MOMETASONE FUROATE
     Indication: Lacrimation increased

REACTIONS (3)
  - Drug ineffective [Unknown]
  - Underdose [Unknown]
  - Off label use [Unknown]

NARRATIVE: CASE EVENT DATE: 20240309
